FAERS Safety Report 6636269-2 (Version None)
Quarter: 2010Q1

REPORT INFORMATION
  Report Type: 
  Country: None (occurrence: None)
  Receive Date: 20100311
  Receipt Date: 20100225
  Transmission Date: 20100710
  Serious: Yes (Other)
  Sender: FDA-Public Use
  Company Number: 2010-0679

PATIENT
  Sex: 0

DRUGS (1)
  1. INCRELIX (INCRELIX 10MG/ML)(MECASERMIN) [Suspect]
     Indication: DRUG USE FOR UNKNOWN INDICATION

REACTIONS (1)
  - BENIGN INTRACRANIAL HYPERTENSION [None]
